APPROVED DRUG PRODUCT: FUROSEMIDE
Active Ingredient: FUROSEMIDE
Strength: 40MG
Dosage Form/Route: TABLET;ORAL
Application: N018370 | Product #001
Applicant: SUPERPHARM CORP
Approved: Feb 10, 1983 | RLD: No | RS: No | Type: DISCN